FAERS Safety Report 9051141 (Version 1)
Quarter: 2013Q1

REPORT INFORMATION
  Report Type: Spontaneous
  Country: US (occurrence: US)
  Receive Date: 20130206
  Receipt Date: 20130206
  Transmission Date: 20140127
  Serious: No
  Sender: FDA-Public Use
  Company Number: US-PFIZER INC-2013035012

PATIENT
  Age: 57 Year
  Sex: Female

DRUGS (13)
  1. NITROSTAT [Suspect]
     Indication: CHEST PAIN
     Dosage: 0.4 MG, AS NEEDED
     Route: 060
  2. GLIMEPIRIDE [Concomitant]
     Dosage: 4 MG, UNK
  3. OMEPRAZOLE [Concomitant]
     Dosage: 40 MG, UNK
  4. EVISTA [Concomitant]
     Dosage: 60 MG, UNK
  5. POTASSIUM CHLORIDE [Concomitant]
     Dosage: UNK
  6. FENTANYL [Concomitant]
     Dosage: 75 UG, UNK
  7. AGGRENOX [Concomitant]
     Dosage: 25/200 MG, UNK
  8. HUMALOG [Concomitant]
     Dosage: UNK
  9. CARBAMAZEPINE [Concomitant]
     Dosage: 200 MG, UNK
  10. HYDROCODONE W/ACETAMINOPHEN [Concomitant]
     Dosage: 10/500 MG, UNK
  11. ISOSORBIDE [Concomitant]
     Dosage: 60 MG, UNK
  12. CYCLOBENZAPRINE [Concomitant]
     Dosage: 10 MG, UNK
  13. JANUVIA [Concomitant]
     Dosage: 100 MG, UNK

REACTIONS (2)
  - Product solubility abnormal [Unknown]
  - Drug ineffective [Unknown]
